FAERS Safety Report 25551110 (Version 2)
Quarter: 2025Q3

REPORT INFORMATION
  Report Type: Spontaneous
  Country: CA (occurrence: CA)
  Receive Date: 20250714
  Receipt Date: 20250916
  Transmission Date: 20251021
  Serious: Yes (Disabling, Other)
  Sender: OTSUKA
  Company Number: CA-MMM-Otsuka-RB93K41Y

PATIENT
  Age: 52 Year
  Sex: Female
  Weight: 104.31 kg

DRUGS (2)
  1. ABILIFY MAINTENA [Suspect]
     Active Substance: ARIPIPRAZOLE
     Indication: Product used for unknown indication
     Route: 030
     Dates: start: 1997
  2. IBUPROFEN [Concomitant]
     Active Substance: IBUPROFEN
     Indication: Product used for unknown indication
     Route: 065

REACTIONS (14)
  - Balance disorder [Not Recovered/Not Resolved]
  - Condition aggravated [Not Recovered/Not Resolved]
  - Periarthritis [Not Recovered/Not Resolved]
  - Dysmenorrhoea [Not Recovered/Not Resolved]
  - Neuralgia [Not Recovered/Not Resolved]
  - Emotional distress [Not Recovered/Not Resolved]
  - Hypokinesia [Not Recovered/Not Resolved]
  - Anger [Not Recovered/Not Resolved]
  - Apathy [Not Recovered/Not Resolved]
  - Pain [Not Recovered/Not Resolved]
  - Gait disturbance [Not Recovered/Not Resolved]
  - Injection site pain [Not Recovered/Not Resolved]
  - Fatigue [Not Recovered/Not Resolved]
  - Weight increased [Not Recovered/Not Resolved]

NARRATIVE: CASE EVENT DATE: 19970101
